FAERS Safety Report 6830912-0 (Version None)
Quarter: 2010Q3

REPORT INFORMATION
  Report Type: 
  Country: None (occurrence: None)
  Receive Date: 20100712
  Receipt Date: 20100701
  Transmission Date: 20110219
  Serious: Yes (Other)
  Sender: FDA-Public Use
  Company Number: US-BAYER-201026970NA

PATIENT
  Age: 17 Year
  Sex: Female

DRUGS (1)
  1. YAZ [Suspect]
     Indication: UTERINE CYST
     Route: 048
     Dates: start: 20091001, end: 20100301

REACTIONS (4)
  - ALOPECIA [None]
  - EYE IRRITATION [None]
  - EYE PRURITUS [None]
  - WEIGHT INCREASED [None]
